FAERS Safety Report 11050465 (Version 2)
Quarter: 2015Q2

REPORT INFORMATION
  Report Type: Spontaneous
  Country: JP (occurrence: JP)
  Receive Date: 20150421
  Receipt Date: 20150423
  Transmission Date: 20150821
  Serious: Yes (Hospitalization)
  Sender: FDA-Public Use
  Company Number: JP-009507513-1504JPN011492

PATIENT
  Age: 54 Year
  Sex: Female
  Weight: 42 kg

DRUGS (3)
  1. ROZEREM [Suspect]
     Active Substance: RAMELTEON
     Indication: SUICIDE ATTEMPT
     Dosage: 10 TABLETS, 80 MG, DIVIDED DOSE FREQUENCY UNKNOWN
     Route: 048
     Dates: start: 20150326, end: 20150326
  2. DEPAS [Suspect]
     Active Substance: ETIZOLAM
     Indication: SUICIDE ATTEMPT
     Dosage: 57 TABLETS, DOSE: 28.5 MG, DIVIDED DOSE FREQUENCY UNKNOWN
     Route: 048
     Dates: start: 20150326, end: 20150326
  3. BELSOMRA [Suspect]
     Active Substance: SUVOREXANT
     Indication: SUICIDE ATTEMPT
     Dosage: TWO TABLETES, TOTAL DAILY DOSE: 40MG, DIVIDED DOSE FREQUENCY UNKNOWN
     Route: 048
     Dates: start: 20150326, end: 20150326

REACTIONS (2)
  - Overdose [Unknown]
  - Altered state of consciousness [Recovered/Resolved]

NARRATIVE: CASE EVENT DATE: 20150326
